FAERS Safety Report 22109851 (Version 2)
Quarter: 2023Q1

REPORT INFORMATION
  Report Type: Spontaneous
  Country: US (occurrence: US)
  Receive Date: 20230317
  Receipt Date: 20230331
  Transmission Date: 20230418
  Serious: Yes (Hospitalization)
  Sender: FDA-Public Use
  Company Number: US-PARI RESPIRATORY EQUIPMENT, INC.-2023PAR00011

PATIENT
  Sex: Female
  Weight: 37.46 kg

DRUGS (11)
  1. KITABIS PAK [Suspect]
     Active Substance: TOBRAMYCIN
     Indication: Illness
     Dosage: 1 AMPULE (300 MG) VIA NEBULIZER, EVERY 12 HOURS FOR 28 DAYS ON AND 28 DAYS OFF (ALTERNATIVE MONTHLY)
  2. DICYCLOMINE HYDROCHLORIDE [Concomitant]
     Active Substance: DICYCLOMINE HYDROCHLORIDE
  3. LYRICA [Concomitant]
     Active Substance: PREGABALIN
  4. CYMBALTA [Concomitant]
     Active Substance: DULOXETINE HYDROCHLORIDE
  5. ALBUTEROL SULFATE [Concomitant]
     Active Substance: ALBUTEROL SULFATE
  6. SYMBICORT HFA [Concomitant]
  7. NABUMETONE [Concomitant]
     Active Substance: NABUMETONE
  8. METOPROLOL SUCCINATE [Concomitant]
     Active Substance: METOPROLOL SUCCINATE
  9. LOSARTAN POTASSIUM [Concomitant]
     Active Substance: LOSARTAN POTASSIUM
  10. LORAZEPAM [Concomitant]
     Active Substance: LORAZEPAM
  11. LEVOTHYROXINE [Concomitant]
     Active Substance: LEVOTHYROXINE

REACTIONS (5)
  - Hospitalisation [Unknown]
  - Cerebrovascular accident [Not Recovered/Not Resolved]
  - Unresponsive to stimuli [Not Recovered/Not Resolved]
  - Aphasia [Not Recovered/Not Resolved]
  - Off label use [Unknown]
